FAERS Safety Report 13522912 (Version 2)
Quarter: 2017Q2

REPORT INFORMATION
  Report Type: Spontaneous
  Country: AT (occurrence: AT)
  Receive Date: 20170508
  Receipt Date: 20170512
  Transmission Date: 20170830
  Serious: Yes (Death, Other)
  Sender: FDA-Public Use
  Company Number: AT-UCBSA-2017017317

PATIENT
  Age: 16 Year
  Sex: Female

DRUGS (19)
  1. VALPROATE [Concomitant]
     Active Substance: VALPROIC ACID
     Indication: STATUS EPILEPTICUS
     Dosage: UNKNOWN DOSE
  2. KETAMINE [Concomitant]
     Active Substance: KETAMINE
     Indication: STATUS EPILEPTICUS
     Dosage: UNKNOWN DOSE
  3. THIAMINE. [Concomitant]
     Active Substance: THIAMINE
     Indication: PARTIAL SEIZURES
     Dosage: UNKNOWN DOSE
  4. PHENOBARBITAL. [Concomitant]
     Active Substance: PHENOBARBITAL
     Indication: PARTIAL SEIZURES
  5. LACOSAMIDE. [Suspect]
     Active Substance: LACOSAMIDE
     Indication: OFF LABEL USE
  6. LEVETIRACETAM. [Suspect]
     Active Substance: LEVETIRACETAM
     Indication: STATUS EPILEPTICUS
     Dosage: UNKNOWN DOSE
  7. MIDAZOLAM [Concomitant]
     Active Substance: MIDAZOLAM HYDROCHLORIDE
     Indication: STATUS EPILEPTICUS
     Dosage: UNKNOWN DOSE
  8. LACOSAMIDE. [Suspect]
     Active Substance: LACOSAMIDE
     Indication: STATUS EPILEPTICUS
     Dosage: UNKNOWN DOSE
  9. TOPIRAMATE. [Concomitant]
     Active Substance: TOPIRAMATE
     Indication: PARTIAL SEIZURES
  10. COENZYME Q10 [Concomitant]
     Active Substance: UBIDECARENONE
     Indication: PARTIAL SEIZURES
     Dosage: UNKNOWN DOSE
  11. LEVETIRACETAM. [Suspect]
     Active Substance: LEVETIRACETAM
     Indication: OFF LABEL USE
  12. LEVETIRACETAM. [Suspect]
     Active Substance: LEVETIRACETAM
     Indication: PARTIAL SEIZURES
  13. PHENYTOIN. [Concomitant]
     Active Substance: PHENYTOIN
     Indication: STATUS EPILEPTICUS
     Dosage: UNKNOWN DOSE
  14. LORAZEPAM. [Concomitant]
     Active Substance: LORAZEPAM
     Indication: STATUS EPILEPTICUS
     Dosage: UNKNOWN DOSE
  15. THIOPENTAL [Concomitant]
     Active Substance: THIOPENTAL
     Indication: PARTIAL SEIZURES
  16. MAGNESIUM [Concomitant]
     Active Substance: MAGNESIUM
     Indication: PARTIAL SEIZURES
     Dosage: UNKNOWN DOSE
  17. TOPIRAMATE. [Concomitant]
     Active Substance: TOPIRAMATE
     Indication: STATUS EPILEPTICUS
     Dosage: UNKNOWN DOSE
  18. RIBOFLAVIN [Concomitant]
     Active Substance: RIBOFLAVIN
     Indication: PARTIAL SEIZURES
     Dosage: UNKNOWN DOSE
  19. CORTISONE [Concomitant]
     Active Substance: CORTISONE\HYDROCORTISONE
     Indication: STATUS EPILEPTICUS
     Dosage: UNKNOWN DOSE

REACTIONS (7)
  - Myoclonus [Fatal]
  - Mitochondrial DNA mutation [Fatal]
  - Liver disorder [Fatal]
  - Partial seizures [Unknown]
  - Drug ineffective for unapproved indication [Unknown]
  - Off label use [Unknown]
  - Status epilepticus [Unknown]
